FAERS Safety Report 4796812-5 (Version None)
Quarter: 2005Q3

REPORT INFORMATION
  Report Type: 
  Country: None (occurrence: None)
  Receive Date: 20050916
  Receipt Date: 20050113
  Transmission Date: 20060218
  Serious: Yes (Other)
  Sender: FDA-Public Use
  Company Number: US-JNJFOC-20050103850

PATIENT
  Age: 52 Year
  Sex: Female
  Weight: 76.2043 kg

DRUGS (4)
  1. TOPAMAX [Suspect]
     Indication: CONVULSION
     Dosage: 50 MG, 3 IN 1 DAY, ORAL
     Route: 048
     Dates: end: 20050104
  2. KLONIPINE (CLONAZEPAM) [Concomitant]
  3. SEROQUEL [Concomitant]
  4. METHADONE [Concomitant]

REACTIONS (2)
  - METABOLIC ACIDOSIS [None]
  - URINE ABNORMALITY [None]
